FAERS Safety Report 5449014-3 (Version None)
Quarter: 2007Q3

REPORT INFORMATION
  Report Type: 
  Country: None (occurrence: None)
  Receive Date: 20070911
  Receipt Date: 20070831
  Transmission Date: 20080115
  Serious: Yes (Hospitalization)
  Sender: FDA-Public Use
  Company Number: US-ROCHE-515092

PATIENT
  Age: 47 Year
  Sex: Female

DRUGS (2)
  1. PEG-INTERFERON A-2A (RO 25-8310) [Suspect]
     Route: 065
     Dates: start: 20070713, end: 20070831
  2. RIBAVIRIN [Suspect]
     Route: 065
     Dates: start: 20070713, end: 20070831

REACTIONS (4)
  - CHRONIC OBSTRUCTIVE PULMONARY DISEASE [None]
  - HAEMOGLOBIN DECREASED [None]
  - PLATELET COUNT DECREASED [None]
  - STAPHYLOCOCCAL INFECTION [None]
